FAERS Safety Report 5027074-1 (Version None)
Quarter: 2006Q2

REPORT INFORMATION
  Report Type: 
  Country: None (occurrence: None)
  Receive Date: 20060609
  Receipt Date: 20060525
  Transmission Date: 20061013
  Serious: Yes (Hospitalization, Other)
  Sender: FDA-Public Use
  Company Number: 2006058708

PATIENT
  Age: 67 Year
  Sex: Male
  Weight: 97.977 kg

DRUGS (6)
  1. CELEBREX [Suspect]
     Indication: ARTHRITIS
     Dosage: 200 MG (200 MG, 1 IN 1 D)
     Dates: start: 19990101
  2. ATENOLOL [Concomitant]
  3. LIPITOR [Concomitant]
  4. AXID [Concomitant]
  5. LEXAPRO [Concomitant]
  6. MECLIZINE [Concomitant]

REACTIONS (11)
  - ANGINA UNSTABLE [None]
  - ATRIAL FIBRILLATION [None]
  - CARDIAC DISORDER [None]
  - CORONARY ARTERY DISEASE [None]
  - CORONARY ARTERY OCCLUSION [None]
  - CORONARY ARTERY STENOSIS [None]
  - DERMATITIS CONTACT [None]
  - EJECTION FRACTION DECREASED [None]
  - INJURY [None]
  - MYOCARDIAL INFARCTION [None]
  - VERTIGO [None]
